FAERS Safety Report 9719724 (Version 3)
Quarter: 2014Q1

REPORT INFORMATION
  Report Type: Spontaneous
  Country: US (occurrence: US)
  Receive Date: 20131128
  Receipt Date: 20140224
  Transmission Date: 20141002
  Serious: Yes (Disabling, Other)
  Sender: FDA-Public Use
  Company Number: US-BEH-200712424

PATIENT
  Age: 59 Year
  Sex: Male
  Weight: 103 kg

DRUGS (24)
  1. ZEMAIRA [Suspect]
     Indication: ALPHA-1 ANTI-TRYPSIN DEFICIENCY
     Dosage: START: ??-AUG-2005; 7 G EVERY WEEK
     Route: 042
  2. ZEMAIRA [Suspect]
     Dosage: EVERY OTHER WEEK OVER 2 HOURS
     Route: 042
  3. ZEMAIRA [Suspect]
     Dosage: 988 MG/VIAL
     Route: 042
  4. ATENOLOL [Concomitant]
     Indication: MIGRAINE PROPHYLAXIS
     Route: 048
  5. DIPHENHYDRAMINE [Concomitant]
  6. SODIUM CHLORIDE [Concomitant]
     Dosage: 0.9%
  7. EPIPEN [Concomitant]
  8. LMX [Concomitant]
  9. MAGNESIUM SULFATE [Concomitant]
     Dosage: POWDER
  10. GABAPENTIN [Concomitant]
     Route: 048
  11. PREDNISONE [Concomitant]
  12. ATENOLOL [Concomitant]
     Route: 048
  13. FIORINAL [Concomitant]
     Dosage: 50-325-40 MG
     Route: 048
  14. MAXALT [Concomitant]
     Route: 048
  15. EXCEDRIN MIGRAINE [Concomitant]
     Dosage: CAPLET
     Route: 048
  16. GLYBURIDE [Concomitant]
     Route: 048
  17. NEXIUM [Concomitant]
     Route: 048
  18. ALBUTEROL [Concomitant]
     Dosage: 0.083%
     Route: 055
  19. COMBIVENT [Concomitant]
     Route: 055
  20. CINNAMON [Concomitant]
     Route: 048
  21. MULTIVITAMIN [Concomitant]
  22. LEVOTHYROXINE [Concomitant]
  23. DIAZEPAM [Concomitant]
  24. ASA LOW DOSE [Concomitant]
     Dosage: EC
     Route: 048

REACTIONS (10)
  - Migraine [Unknown]
  - Migraine [Unknown]
  - Influenza [Unknown]
  - Dizziness [Unknown]
  - Lethargy [Unknown]
  - Paraesthesia [Unknown]
  - Sinusitis [Unknown]
  - Migraine [Unknown]
  - Dizziness [Unknown]
  - Headache [Unknown]
